FAERS Safety Report 10224380 (Version 2)
Quarter: 2014Q2

REPORT INFORMATION
  Report Type: Spontaneous
  Country: BG (occurrence: BG)
  Receive Date: 20140609
  Receipt Date: 20140623
  Transmission Date: 20141212
  Serious: Yes (Hospitalization)
  Sender: FDA-Public Use
  Company Number: BG-JNJFOC-20140518776

PATIENT
  Age: 62 Year
  Sex: Female

DRUGS (6)
  1. XEPLION [Suspect]
     Indication: SCHIZOPHRENIA, PARANOID TYPE
     Route: 030
     Dates: start: 201302, end: 20140510
  2. XEPLION [Suspect]
     Indication: SCHIZOPHRENIA, PARANOID TYPE
     Route: 030
     Dates: start: 201212, end: 201301
  3. ADEMETIONINE [Concomitant]
     Indication: HEPATIC FAILURE
     Route: 042
     Dates: start: 20140518, end: 20140602
  4. TAVANIC [Concomitant]
     Indication: PNEUMONIA
     Route: 042
     Dates: start: 20140518, end: 20140602
  5. DEXAMETHASONE [Concomitant]
     Indication: CHRONIC OBSTRUCTIVE PULMONARY DISEASE
     Route: 042
     Dates: start: 20140518, end: 20140602
  6. CLONIDINE HYDROCHLORIDE [Concomitant]
     Indication: HYPERTENSION
     Route: 042
     Dates: start: 20140518, end: 20140602

REACTIONS (2)
  - Hepatic failure [Recovered/Resolved]
  - Pneumonia [Recovered/Resolved]
